FAERS Safety Report 7381384-1 (Version None)
Quarter: 2011Q1

REPORT INFORMATION
  Report Type: 
  Country: None (occurrence: None)
  Receive Date: 20110324
  Receipt Date: 20110324
  Transmission Date: 20110831
  Serious: Yes (Life-Threatening, Hospitalization)
  Sender: FDA-Public Use
  Company Number: None

PATIENT
  Sex: Male
  Weight: 83.9154 kg

DRUGS (1)
  1. DARVOCET [Suspect]
     Indication: KNEE OPERATION
     Dosage: WAS NEVER ABUSED; DOCTOR AT HOSPITAL OK WITH THEM

REACTIONS (5)
  - DELUSION [None]
  - MENTAL DISORDER DUE TO A GENERAL MEDICAL CONDITION [None]
  - SEROTONIN SYNDROME [None]
  - HALLUCINATION [None]
  - RENAL FAILURE [None]
